FAERS Safety Report 15565102 (Version 1)
Quarter: 2018Q4

REPORT INFORMATION
  Report Type: Spontaneous
  Country: JP (occurrence: JP)
  Receive Date: 20181030
  Receipt Date: 20181030
  Transmission Date: 20190205
  Serious: Yes (Life-Threatening, Hospitalization)
  Sender: FDA-Public Use
  Company Number: JP-SUN PHARMACEUTICAL INDUSTRIES LTD-2018R1-189789

PATIENT
  Age: 56 Year
  Sex: Male
  Weight: 66.9 kg

DRUGS (6)
  1. INFLIXIMAB [Suspect]
     Active Substance: INFLIXIMAB
     Dosage: 6 MG/KG/8 WEEKS
     Route: 065
     Dates: start: 201003, end: 20111211
  2. METHOTREXATE. [Suspect]
     Active Substance: METHOTREXATE
     Indication: RHEUMATOID ARTHRITIS
     Dosage: UNK
     Route: 065
  3. METHOTREXATE. [Suspect]
     Active Substance: METHOTREXATE
     Dosage: 12 MG/WEEK
     Route: 065
     Dates: start: 201003
  4. METHOTREXATE. [Suspect]
     Active Substance: METHOTREXATE
     Dosage: 8 MG/WEEK
     Route: 065
     Dates: start: 200912
  5. ISONIAZID. [Concomitant]
     Active Substance: ISONIAZID
     Indication: PROPHYLAXIS
     Dosage: 300 MG, DAILY
     Route: 065
  6. INFLIXIMAB [Suspect]
     Active Substance: INFLIXIMAB
     Indication: RHEUMATOID ARTHRITIS
     Dosage: UNK
     Route: 065
     Dates: start: 200912

REACTIONS (1)
  - Penicillium infection [Recovering/Resolving]
